FAERS Safety Report 5206023-7 (Version None)
Quarter: 2007Q1

REPORT INFORMATION
  Report Type: 
  Country: None (occurrence: None)
  Receive Date: 20070111
  Receipt Date: 20070104
  Transmission Date: 20070707
  Serious: Yes (Death)
  Sender: FDA-Public Use
  Company Number: US-MERCK-0612USA02728

PATIENT
  Sex: Female

DRUGS (1)
  1. ZOLINZA [Suspect]
     Indication: MYCOSIS FUNGOIDES
     Route: 048
     Dates: start: 20061101, end: 20061201

REACTIONS (3)
  - DEHYDRATION [None]
  - DIARRHOEA [None]
  - MYOCARDIAL INFARCTION [None]
